FAERS Safety Report 5958389-8 (Version None)
Quarter: 2008Q4

REPORT INFORMATION
  Report Type: 
  Country: None (occurrence: None)
  Receive Date: 20081119
  Receipt Date: 20081110
  Transmission Date: 20090506
  Serious: Yes (Hospitalization)
  Sender: FDA-Public Use
  Company Number: DE-ASTRAZENECA-2008PK02454

PATIENT
  Age: 30 Year
  Sex: Female
  Weight: 75 kg

DRUGS (5)
  1. SEROQUEL [Suspect]
     Route: 048
     Dates: end: 20080101
  2. SEROQUEL [Suspect]
     Route: 048
     Dates: start: 20080101, end: 20080328
  3. SEROQUEL [Suspect]
     Route: 048
     Dates: start: 20080329
  4. REMERGIL [Concomitant]
     Route: 048
     Dates: start: 20070601
  5. ZOP [Concomitant]
     Route: 048
     Dates: start: 20070601, end: 20080408

REACTIONS (1)
  - HEPATIC ENZYME INCREASED [None]
